FAERS Safety Report 6945922-2 (Version None)
Quarter: 2010Q3

REPORT INFORMATION
  Report Type: 
  Country: None (occurrence: None)
  Receive Date: 20100827
  Receipt Date: 20100823
  Transmission Date: 20110219
  Serious: Yes (Death)
  Sender: FDA-Public Use
  Company Number: PHHY2010RU56586

PATIENT
  Sex: Male

DRUGS (9)
  1. EXELON [Suspect]
     Dosage: 3 MG
     Route: 048
  2. EXELON [Suspect]
     Dosage: 6 MG
  3. EXELON [Suspect]
     Dosage: 9 MG
  4. EXELON [Suspect]
     Dosage: 12 MG
  5. CEREBROLYSIN [Concomitant]
     Dosage: 10ML
     Route: 042
     Dates: start: 20100113
  6. PANANGIN [Concomitant]
     Dosage: 10ML, DROP BY DROP
     Route: 042
     Dates: start: 20100113
  7. HEPARIN [Concomitant]
     Dosage: 24000 UN DAILY
     Dates: start: 20100113, end: 20100120
  8. NIFEDIPINE [Concomitant]
     Dosage: UNK
     Dates: start: 20100113
  9. OMEPRAZOLE [Concomitant]
     Dosage: 20MG,
     Dates: start: 20100113

REACTIONS (1)
  - HAEMORRHAGIC STROKE [None]
